FAERS Safety Report 18480157 (Version 1)
Quarter: 2020Q4

REPORT INFORMATION
  Report Type: Spontaneous
  Country: FR (occurrence: FR)
  Receive Date: 20201109
  Receipt Date: 20201109
  Transmission Date: 20210114
  Serious: Yes (Hospitalization)
  Sender: FDA-Public Use
  Company Number: FR-TEVA-2020-FR-1845492

PATIENT
  Age: 93 Year
  Sex: Female
  Weight: 50 kg

DRUGS (8)
  1. METOJECT 10 MG/0,2 ML, SOLUTION INJECTABLE EN SERINGUE PREREMPLIE [Concomitant]
     Active Substance: METHOTREXATE SODIUM
  2. DILTIAZEM (CHLORHYDRATE DE) [Suspect]
     Active Substance: DILTIAZEM HYDROCHLORIDE
     Indication: HYPERTENSION
     Dosage: 200 MG
     Route: 048
     Dates: start: 20200221, end: 20200626
  3. ACIDE FOLIQUE CCD 5 MG, COMPRIME [Concomitant]
  4. LANSOPRAZOLE MYLAN [Concomitant]
     Active Substance: LANSOPRAZOLE
  5. CALCIDOSE VITAMINE D, POUDRE ORALE EN SACHET-DOSE [Concomitant]
     Active Substance: CALCIUM\CHOLECALCIFEROL
  6. VALSARTAN ARROW 40 MG, COMPRIME PELLICULE SECABLE [Concomitant]
     Active Substance: VALSARTAN
  7. CIRCADIN 2 MG, COMPRIME A LIBERATION PROLONGEE [Concomitant]
     Active Substance: MELATONIN
  8. CORTANCYL [Suspect]
     Active Substance: PREDNISONE
     Indication: GIANT CELL ARTERITIS
     Route: 048
     Dates: start: 20200224, end: 20200701

REACTIONS (2)
  - Transcription medication error [Recovered/Resolved]
  - Oedema peripheral [Recovered/Resolved]

NARRATIVE: CASE EVENT DATE: 20200528
